FAERS Safety Report 8836242 (Version 2)
Quarter: 2012Q4

REPORT INFORMATION
  Report Type: 
  Country: GB (occurrence: GB)
  Receive Date: 20121011
  Receipt Date: 20121031
  Transmission Date: 20130627
  Serious: Yes (Other)
  Sender: FDA-Public Use
  Company Number: PHHY2012GB085603

PATIENT
  Age: 75 Year
  Sex: Female

DRUGS (2)
  1. MEROPENEM [Suspect]
     Indication: INFECTION
     Dates: start: 20120914
  2. ZYVOX [Interacting]
     Indication: INFECTION
     Dosage: 600 mg, BID
     Route: 048
     Dates: start: 20120914

REACTIONS (3)
  - Gastrointestinal haemorrhage [Not Recovered/Not Resolved]
  - Red blood cell count decreased [Not Recovered/Not Resolved]
  - Drug interaction [Not Recovered/Not Resolved]
